FAERS Safety Report 5951747-7 (Version None)
Quarter: 2008Q4

REPORT INFORMATION
  Report Type: 
  Country: None (occurrence: None)
  Receive Date: 20081113
  Receipt Date: 20081110
  Transmission Date: 20090506
  Serious: Yes (Hospitalization)
  Sender: FDA-Public Use
  Company Number: US-MERCK-0811USA01286

PATIENT
  Age: 71 Year
  Sex: Female

DRUGS (8)
  1. FOSAMAX PLUS D [Suspect]
     Indication: OSTEOPOROSIS
     Route: 048
     Dates: start: 20070101, end: 20080603
  2. FOSAMAX PLUS D [Suspect]
     Route: 048
     Dates: start: 20080101
  3. [THERAPY UNSPECIFIED] [Concomitant]
     Route: 065
  4. TRICOR [Concomitant]
     Route: 065
  5. PRAVACHOL [Concomitant]
     Route: 065
  6. COUMADIN [Concomitant]
     Route: 065
  7. TOPROL-XL [Concomitant]
     Route: 065
  8. PROCARDIA [Concomitant]
     Route: 065

REACTIONS (3)
  - ARTHROPATHY [None]
  - DRUG DOSE OMISSION [None]
  - EAR DISORDER [None]
